FAERS Safety Report 4382625-5 (Version None)
Quarter: 2004Q2

REPORT INFORMATION
  Report Type: 
  Country: None (occurrence: None)
  Receive Date: 20040617
  Receipt Date: 20040602
  Transmission Date: 20050107
  Serious: Yes (Hospitalization)
  Sender: FDA-Public Use
  Company Number: 2003-06261

PATIENT
  Sex: Male
  Weight: 69 kg

DRUGS (8)
  1. VIREAD [Suspect]
     Indication: HIV INFECTION
     Dosage: 300 MG, 1 IN 1 D, ORAL
     Route: 048
     Dates: start: 20020210, end: 20030908
  2. SUSTIVA [Concomitant]
  3. AGENERASE [Concomitant]
  4. KALETRA [Concomitant]
  5. BACTRIM [Concomitant]
  6. FLUCONAZOLE [Concomitant]
  7. AZADOSE (AZITHROMYCIN) [Concomitant]
  8. NEURONTIN [Concomitant]

REACTIONS (8)
  - DEHYDRATION [None]
  - DIALYSIS [None]
  - DIARRHOEA [None]
  - GLOMERULAR VASCULAR DISORDER [None]
  - ISCHAEMIA [None]
  - RENAL FAILURE ACUTE [None]
  - RENAL TUBULAR DISORDER [None]
  - RENAL TUBULAR NECROSIS [None]
